FAERS Safety Report 24963509 (Version 3)
Quarter: 2025Q2

REPORT INFORMATION
  Report Type: Spontaneous
  Country: JP (occurrence: JP)
  Receive Date: 20250213
  Receipt Date: 20250630
  Transmission Date: 20250717
  Serious: Yes (Other)
  Sender: BRISTOL-MYERS SQUIBB COMPANY
  Company Number: JP-ONO-2025JP002137

PATIENT
  Age: 78 Year
  Sex: Male
  Weight: 80.2 kg

DRUGS (1)
  1. OPDIVO [Suspect]
     Active Substance: NIVOLUMAB
     Indication: Malignant melanoma
     Route: 041
     Dates: start: 20181127, end: 20190827

REACTIONS (1)
  - Embolic cerebellar infarction [Not Recovered/Not Resolved]

NARRATIVE: CASE EVENT DATE: 20190917
